FAERS Safety Report 19597907 (Version 1)
Quarter: 2021Q3

REPORT INFORMATION
  Report Type: Spontaneous
  Country: US (occurrence: US)
  Receive Date: 20210722
  Receipt Date: 20210722
  Transmission Date: 20211014
  Serious: Yes (Death)
  Sender: FDA-Public Use
  Company Number: None

PATIENT
  Age: 75 Year
  Sex: Male
  Weight: 93.15 kg

DRUGS (3)
  1. ZEPZELCA [Suspect]
     Active Substance: LURBINECTEDIN
     Indication: LUNG CARCINOMA CELL TYPE UNSPECIFIED STAGE 0
     Dosage: ?          OTHER FREQUENCY:EVERY 21DAYS;?
     Route: 042
  2. DEXAMETHASONE. [Suspect]
     Active Substance: DEXAMETHASONE
     Indication: LUNG CARCINOMA CELL TYPE UNSPECIFIED STAGE 0
     Dosage: ?          OTHER FREQUENCY:EVERY 21DAYS;?
     Route: 042
  3. ONDANSETRON 2MG/ML [Concomitant]
     Active Substance: ONDANSETRON

REACTIONS (1)
  - Death [None]

NARRATIVE: CASE EVENT DATE: 20210705
